FAERS Safety Report 24421548 (Version 1)
Quarter: 2024Q4

REPORT INFORMATION
  Report Type: Report from Study
  Country: IL (occurrence: IL)
  Receive Date: 20241010
  Receipt Date: 20241010
  Transmission Date: 20250115
  Serious: Yes (Other)
  Sender: MLV PHARMA
  Company Number: IL-MPL-000062

PATIENT
  Age: 75 Year
  Sex: Male

DRUGS (3)
  1. ASPIRIN [Concomitant]
     Active Substance: ASPIRIN
     Indication: Product used for unknown indication
     Route: 065
  2. PREDNISONE [Concomitant]
     Active Substance: PREDNISONE
     Indication: Product used for unknown indication
     Route: 065
  3. PYRIDOSTIGMINE [Suspect]
     Active Substance: PYRIDOSTIGMINE
     Indication: Ocular myasthenia
     Route: 065

REACTIONS (2)
  - Drug ineffective [Unknown]
  - Diarrhoea [Unknown]
